FAERS Safety Report 9300108 (Version 1)
Quarter: 2013Q2

REPORT INFORMATION
  Report Type: Report from Study
  Country: JP (occurrence: JP)
  Receive Date: 20130521
  Receipt Date: 20130521
  Transmission Date: 20140414
  Serious: Yes (Hospitalization, Other)
  Sender: FDA-Public Use
  Company Number: JP-ROCHE-GNE307724

PATIENT
  Age: 78 Year
  Sex: Male
  Weight: 56.06 kg

DRUGS (20)
  1. OMALIZUMAB [Suspect]
     Indication: ASTHMA
     Dosage: 225 MG, Q2W
     Route: 058
     Dates: start: 20100212
  2. OMALIZUMAB [Suspect]
     Dosage: 225 MG, Q2W
     Route: 058
     Dates: start: 20120226
  3. OMALIZUMAB [Suspect]
     Dosage: 225 MG, Q2W
     Route: 058
     Dates: start: 20100312
  4. OMALIZUMAB [Suspect]
     Dosage: 225 MG, Q2W
     Route: 058
     Dates: start: 20100326
  5. OMALIZUMAB [Suspect]
     Dosage: 225 MG, Q2W
     Route: 058
     Dates: start: 20100409
  6. OMALIZUMAB [Suspect]
     Dosage: 225 MG, Q2W
     Route: 058
     Dates: start: 20100423
  7. OMALIZUMAB [Suspect]
     Dosage: 225 MG, Q2W
     Route: 058
     Dates: start: 20100507
  8. OMALIZUMAB [Suspect]
     Dosage: 225 MG, Q2W
     Route: 058
     Dates: start: 20100521
  9. OMALIZUMAB [Suspect]
     Dosage: 225 MG, Q2W
     Route: 058
     Dates: start: 20100604
  10. OMALIZUMAB [Suspect]
     Route: 058
     Dates: start: 20100903
  11. OMALIZUMAB [Suspect]
     Route: 058
     Dates: start: 20101001
  12. ADVAIR [Concomitant]
     Indication: ASTHMA
     Dosage: UNK
     Route: 065
     Dates: start: 20080925
  13. HOKUNALIN [Concomitant]
     Indication: PRODUCT USED FOR UNKNOWN INDICATION
     Dosage: UNK
     Route: 065
     Dates: start: 20100925
  14. SINGULAIR [Concomitant]
     Indication: PRODUCT USED FOR UNKNOWN INDICATION
     Dosage: UNK
     Route: 065
     Dates: start: 20080925
  15. UNIPHYL [Concomitant]
     Indication: PRODUCT USED FOR UNKNOWN INDICATION
     Dosage: UNK
     Route: 065
     Dates: start: 20080925
  16. PREDONINE [Concomitant]
     Indication: PRODUCT USED FOR UNKNOWN INDICATION
     Dosage: UNK
     Route: 065
     Dates: start: 20100116
  17. MUCODYNE [Concomitant]
     Indication: PRODUCT USED FOR UNKNOWN INDICATION
     Dosage: UNK
     Route: 065
     Dates: start: 20080925
  18. GASTROM [Concomitant]
     Indication: PRODUCT USED FOR UNKNOWN INDICATION
     Dosage: UNK
     Route: 065
     Dates: start: 20080925
  19. TAKEPRON [Concomitant]
     Indication: PRODUCT USED FOR UNKNOWN INDICATION
     Dosage: UNK
     Route: 065
     Dates: start: 20080925
  20. SPIRIVA [Concomitant]
     Indication: PRODUCT USED FOR UNKNOWN INDICATION
     Dosage: UNK
     Route: 065
     Dates: start: 20080925

REACTIONS (5)
  - Pneumonia [Recovered/Resolved]
  - Asthma [Recovering/Resolving]
  - Colon cancer [Not Recovered/Not Resolved]
  - Metastases to liver [Unknown]
  - Metastases to pleura [Unknown]
